FAERS Safety Report 18266233 (Version 1)
Quarter: 2020Q3

REPORT INFORMATION
  Report Type: Spontaneous
  Country: CA (occurrence: CA)
  Receive Date: 20200915
  Receipt Date: 20200915
  Transmission Date: 20201103
  Serious: Yes (Hospitalization, Other)
  Sender: FDA-Public Use
  Company Number: CA-AUROBINDO-AUR-APL-2020-047575

PATIENT
  Age: 69 Year
  Sex: Male

DRUGS (2)
  1. AMOXICILLIN. [Suspect]
     Active Substance: AMOXICILLIN
     Indication: PRODUCT USED FOR UNKNOWN INDICATION
     Dosage: 850 MILLIGRAM, TWO TIMES A DAY
     Route: 065
  2. FAMPYRA [Suspect]
     Active Substance: DALFAMPRIDINE
     Indication: GAIT DISTURBANCE
     Dosage: 10 MILLIGRAM, TWO TIMES A DAY
     Route: 048

REACTIONS (28)
  - Confusional state [Unknown]
  - Depressed mood [Unknown]
  - Extra dose administered [Unknown]
  - Sensory loss [Unknown]
  - Erythema [Unknown]
  - General physical health deterioration [Unknown]
  - Oedema peripheral [Unknown]
  - Device placement issue [Unknown]
  - Fatigue [Unknown]
  - Pain [Unknown]
  - Peripheral swelling [Unknown]
  - Psychiatric symptom [Unknown]
  - Feeling abnormal [Unknown]
  - Muscular weakness [Unknown]
  - Speech disorder [Unknown]
  - Delirium [Unknown]
  - Diarrhoea [Unknown]
  - Presyncope [Unknown]
  - Stress [Unknown]
  - Loss of control of legs [Unknown]
  - Amnesia [Unknown]
  - Aphasia [Unknown]
  - Faecaloma [Unknown]
  - Asthenia [Unknown]
  - Burnout syndrome [Unknown]
  - Frustration tolerance decreased [Unknown]
  - Mobility decreased [Unknown]
  - Motor dysfunction [Unknown]
